FAERS Safety Report 9645267 (Version 1)
Quarter: 2013Q4

REPORT INFORMATION
  Report Type: Spontaneous
  Country: US (occurrence: None)
  Receive Date: 20131023
  Receipt Date: 20131023
  Transmission Date: 20140711
  Serious: Yes (Other)
  Sender: FDA-Public Use
  Company Number: 99108

PATIENT
  Age: 37 Year
  Sex: Male

DRUGS (2)
  1. SALICYLIC ACID 2% [Suspect]
     Indication: ACNE
     Route: 061
     Dates: start: 20130911
  2. PSYCHIATRIC MEDICATIONS [Concomitant]

REACTIONS (4)
  - Erythema [None]
  - Thermal burn [None]
  - Middle insomnia [None]
  - Skin discolouration [None]
